FAERS Safety Report 8353899-0 (Version None)
Quarter: 2012Q2

REPORT INFORMATION
  Report Type: 
  Country: None (occurrence: None)
  Receive Date: 20120511
  Receipt Date: 20120223
  Transmission Date: 20120825
  Serious: No
  Sender: FDA-Public Use
  Company Number: US-GLAXOSMITHKLINE-A0967191A

PATIENT
  Age: 69 Year
  Sex: Female
  Weight: 51.8 kg

DRUGS (2)
  1. TYKERB [Suspect]
     Indication: PRODUCT USED FOR UNKNOWN INDICATION
     Dosage: 250MG UNKNOWN
  2. LOMOTIL [Concomitant]
     Indication: DIARRHOEA
     Route: 048

REACTIONS (3)
  - NAUSEA [None]
  - DIARRHOEA [None]
  - FATIGUE [None]
